FAERS Safety Report 22015267 (Version 3)
Quarter: 2023Q1

REPORT INFORMATION
  Report Type: Other
  Country: US (occurrence: None)
  Receive Date: 20230221
  Receipt Date: 20230224
  Transmission Date: 20230418
  Serious: Yes (Death)
  Sender: FDA-Public Use
  Company Number: US-ROCHE-3289017

PATIENT
  Age: 76 Year
  Sex: Female

DRUGS (18)
  1. ZELBORAF [Suspect]
     Active Substance: VEMURAFENIB
     Indication: Malignant melanoma
     Dosage: TAKE 4 TABLET(S) BY MOUTH (960MG) TWICE A DAY. CALL CLINIC BEFORE STARTING MEDICATION.
     Route: 048
  2. ZELBORAF [Suspect]
     Active Substance: VEMURAFENIB
     Route: 065
  3. ZELBORAF [Suspect]
     Active Substance: VEMURAFENIB
     Route: 048
  4. ZELBORAF [Suspect]
     Active Substance: VEMURAFENIB
     Route: 065
  5. ZELBORAF [Suspect]
     Active Substance: VEMURAFENIB
     Dosage: TAKE 4 TABLET(S) BY MOUTH (960MG) TWICE A DAY. CALL CLINIC BEFORE?STARTING MEDICATION.
     Route: 048
  6. COTELLIC [Suspect]
     Active Substance: COBIMETINIB
     Indication: Malignant melanoma
     Dosage: TAKE 3 TABLET(S) BY MOUTH (60MG) DAILY FOR 21 DAYS FOLLOWED BY 7 DAYS OFF. CALL CLINIC BEFORE STARTI
     Route: 048
  7. COTELLIC [Suspect]
     Active Substance: COBIMETINIB
     Route: 065
  8. COTELLIC [Suspect]
     Active Substance: COBIMETINIB
     Dosage: TAKE 3 TABLET(S) BY MOUTH (60MG) DAILY FOR 21 DAYS FOLLOWED BY 7?DAYS OFF.
     Route: 048
  9. ACYCLOVIR [Concomitant]
     Active Substance: ACYCLOVIR
  10. APIXABAN [Concomitant]
     Active Substance: APIXABAN
  11. ASPIRIN [Concomitant]
     Active Substance: ASPIRIN
  12. CEPHALEXIN [Concomitant]
     Active Substance: CEPHALEXIN
  13. FUROSEMIDE [Concomitant]
     Active Substance: FUROSEMIDE
  14. HYDROMORPHONE [Concomitant]
     Active Substance: HYDROMORPHONE
  15. HYDROMORPHONE [Concomitant]
     Active Substance: HYDROMORPHONE
  16. HYDROXYZINE HYDROCHLORIDE [Concomitant]
     Active Substance: HYDROXYZINE HYDROCHLORIDE
  17. POTASSIUM CHLORIDE [Concomitant]
     Active Substance: POTASSIUM CHLORIDE
  18. VEMURAFENIB [Concomitant]
     Active Substance: VEMURAFENIB

REACTIONS (1)
  - Death [Fatal]
